FAERS Safety Report 20862661 (Version 1)
Quarter: 2022Q2

REPORT INFORMATION
  Report Type: Spontaneous
  Country: US (occurrence: None)
  Receive Date: 20220522
  Receipt Date: 20220522
  Transmission Date: 20220720
  Serious: Yes (unspecified)
  Sender: FDA-Public Use
  Company Number: None

PATIENT
  Age: 63 Year
  Sex: Male

DRUGS (1)
  1. CIPROFLOXACIN [Suspect]
     Active Substance: CIPROFLOXACIN
     Indication: Infection
     Route: 048
     Dates: start: 20220514, end: 20220514

REACTIONS (7)
  - Hyperaesthesia [None]
  - Arthropathy [None]
  - Peripheral swelling [None]
  - Hypoaesthesia [None]
  - Muscle twitching [None]
  - Visual impairment [None]
  - Chest pain [None]

NARRATIVE: CASE EVENT DATE: 20220514
